FAERS Safety Report 11894649 (Version 2)
Quarter: 2016Q1

REPORT INFORMATION
  Report Type: Report from Study
  Country: AR (occurrence: AR)
  Receive Date: 20160107
  Receipt Date: 20160120
  Transmission Date: 20160526
  Serious: Yes (Other)
  Sender: FDA-Public Use
  Company Number: PHHY2015AR170566

PATIENT
  Age: 74 Year
  Sex: Female

DRUGS (4)
  1. RASILEZ D [Suspect]
     Active Substance: ALISKIREN\HYDROCHLOROTHIAZIDE
     Indication: BLOOD PRESSURE ABNORMAL
     Dosage: 1 DF (300/12.5), (1/1.5 DAILY)
     Route: 065
  2. RASILEZ D [Suspect]
     Active Substance: ALISKIREN\HYDROCHLOROTHIAZIDE
     Indication: NERVOUSNESS
  3. DICLOFENAC [Concomitant]
     Active Substance: DICLOFENAC
     Indication: PRODUCT USED FOR UNKNOWN INDICATION
     Route: 065
  4. DIAZEPAM. [Concomitant]
     Active Substance: DIAZEPAM
     Indication: PRODUCT USED FOR UNKNOWN INDICATION
     Route: 065

REACTIONS (17)
  - Blood pressure increased [Recovered/Resolved]
  - Nightmare [Not Recovered/Not Resolved]
  - Renal injury [Unknown]
  - Depression [Unknown]
  - Blood pressure diastolic decreased [Not Recovered/Not Resolved]
  - Emotional disorder [Recovered/Resolved]
  - Blood urea increased [Recovered/Resolved]
  - Insomnia [Recovered/Resolved]
  - Dyspnoea [Not Recovered/Not Resolved]
  - Blood pressure systolic decreased [Not Recovered/Not Resolved]
  - Drug prescribing error [Unknown]
  - Nervousness [Unknown]
  - Heart rate increased [Recovered/Resolved]
  - Wrong technique in product usage process [Unknown]
  - Feeling abnormal [Unknown]
  - Blood pressure inadequately controlled [Recovering/Resolving]
  - Back pain [Not Recovered/Not Resolved]

NARRATIVE: CASE EVENT DATE: 20160111
